FAERS Safety Report 21605942 (Version 1)
Quarter: 2022Q4

REPORT INFORMATION
  Report Type: Report from Study
  Country: US (occurrence: US)
  Receive Date: 20221117
  Receipt Date: 20221117
  Transmission Date: 20230112
  Serious: No
  Sender: FDA-Public Use
  Company Number: US-ABBVIE-4201290

PATIENT
  Sex: Male

DRUGS (16)
  1. VENCLEXTA [Suspect]
     Active Substance: VENETOCLAX
     Indication: Chronic lymphocytic leukaemia
     Route: 048
     Dates: start: 20221013
  2. Amoxicillin-Pot Clavulanate Oral Ta [Concomitant]
     Indication: Product used for unknown indication
     Route: 048
  3. Pioglitazone HCl Oral Tablet 15 MG [Concomitant]
     Indication: Product used for unknown indication
     Route: 048
  4. DIAZEPAM [Concomitant]
     Active Substance: DIAZEPAM
     Indication: Product used for unknown indication
     Route: 048
  5. metFORMIN HCl ER Oral Tablet Extend 500 mg [Concomitant]
     Indication: Product used for unknown indication
     Route: 048
  6. Pantoprazole Sodium Oral Tablet Del 20 mg [Concomitant]
     Indication: Product used for unknown indication
     Route: 048
  7. Levaquin Oral Tablet 500 MG [Concomitant]
     Indication: Product used for unknown indication
     Route: 048
  8. ATORVASTATIN CALCIUM [Concomitant]
     Active Substance: ATORVASTATIN CALCIUM
     Indication: Product used for unknown indication
     Route: 048
  9. Trimethoprim Oral Tablet 100 MG [Concomitant]
     Indication: Product used for unknown indication
     Route: 048
  10. Metoclopramide HCl Oral Tablet 10 MG [Concomitant]
     Indication: Product used for unknown indication
     Route: 048
  11. FUROSEMIDE [Concomitant]
     Active Substance: FUROSEMIDE
     Indication: Product used for unknown indication
     Route: 048
  12. glipiZIDE Oral Tablet 10 MG [Concomitant]
     Indication: Product used for unknown indication
     Route: 048
  13. Sotalol HCl Oral Tablet 160 MG [Concomitant]
     Indication: Product used for unknown indication
     Route: 048
  14. oxyCODONE HCl Oral Tablet 5 MG [Concomitant]
     Indication: Product used for unknown indication
     Route: 048
  15. Aspirin 81 mg Oral Tablet Delayed Rele [Concomitant]
     Indication: Product used for unknown indication
     Route: 048
  16. DILTIAZEM HYDROCHLORIDE [Concomitant]
     Active Substance: DILTIAZEM HYDROCHLORIDE
     Indication: Product used for unknown indication
     Route: 048

REACTIONS (2)
  - Fatigue [Unknown]
  - Nausea [Unknown]

NARRATIVE: CASE EVENT DATE: 20220101
